FAERS Safety Report 14591085 (Version 1)
Quarter: 2018Q1

REPORT INFORMATION
  Report Type: Report from Study
  Country: US (occurrence: US)
  Receive Date: 20180302
  Receipt Date: 20180302
  Transmission Date: 20180509
  Serious: Yes (Hospitalization)
  Sender: FDA-Public Use
  Company Number: US-BAYER-2018-035304

PATIENT
  Age: 30 Year
  Sex: Female

DRUGS (1)
  1. ADEMPAS [Suspect]
     Active Substance: RIOCIGUAT
     Indication: PULMONARY HYPERTENSION
     Dosage: 0.5 MG, TID
     Route: 048
     Dates: start: 20180130

REACTIONS (3)
  - Anaemia [None]
  - Palpitations [None]
  - Feeling hot [None]

NARRATIVE: CASE EVENT DATE: 20180216
